FAERS Safety Report 17061948 (Version 1)
Quarter: 2019Q4

REPORT INFORMATION
  Report Type: Spontaneous
  Country: ES (occurrence: ES)
  Receive Date: 20191121
  Receipt Date: 20191121
  Transmission Date: 20200122
  Serious: Yes (Other)
  Sender: FDA-Public Use
  Company Number: ES-TEVA-2019-ES-1132932

PATIENT
  Age: 65 Year
  Sex: Female

DRUGS (12)
  1. FERROGLYCINE SULFATE [Concomitant]
     Active Substance: FERROGLYCINE SULFATE
  2. DICLOFENAC [Concomitant]
     Active Substance: DICLOFENAC
  3. LORAZEPAM. [Concomitant]
     Active Substance: LORAZEPAM
  4. ZOLPIDEM [Concomitant]
     Active Substance: ZOLPIDEM TARTRATE
  5. TRAMADOL. [Suspect]
     Active Substance: TRAMADOL
     Dosage: FOR 3 YEARS
     Route: 048
  6. TORASEMIDE [Concomitant]
     Active Substance: TORSEMIDE
  7. METAMIZOL [Concomitant]
     Active Substance: METAMIZOLE SODIUM
  8. PREGABALIN. [Concomitant]
     Active Substance: PREGABALIN
  9. PARACETAMOL [Concomitant]
     Active Substance: ACETAMINOPHEN
  10. ROSUVASTATIN. [Concomitant]
     Active Substance: ROSUVASTATIN
  11. LISINOPRIL. [Concomitant]
     Active Substance: LISINOPRIL
  12. DULOXETINE. [Concomitant]
     Active Substance: DULOXETINE

REACTIONS (1)
  - Adrenal insufficiency [Recovered/Resolved]
